FAERS Safety Report 5086110-7 (Version None)
Quarter: 2006Q3

REPORT INFORMATION
  Report Type: 
  Country: None (occurrence: None)
  Receive Date: 20060818
  Receipt Date: 20060804
  Transmission Date: 20061208
  Serious: Yes (Hospitalization)
  Sender: FDA-Public Use
  Company Number: JP200607004179

PATIENT
  Age: 60 Year

DRUGS (3)
  1. ZYPREXA [Suspect]
     Indication: SCHIZOPHRENIA
     Dosage: 5 MG, ORAL
     Route: 048
     Dates: start: 20060712, end: 20060716
  2. RISPERDAL [Concomitant]
  3. DOGMATYL (SULPIRIDE) [Concomitant]

REACTIONS (5)
  - DEHYDRATION [None]
  - DELIRIUM [None]
  - HALLUCINATION [None]
  - PYREXIA [None]
  - SOLILOQUY [None]
